FAERS Safety Report 16597395 (Version 1)
Quarter: 2019Q3

REPORT INFORMATION
  Report Type: Spontaneous
  Country: US (occurrence: US)
  Receive Date: 20190719
  Receipt Date: 20190719
  Transmission Date: 20191004
  Serious: No
  Sender: FDA-Public Use
  Company Number: US-PFIZER INC-2019306634

PATIENT
  Age: 90 Year
  Sex: Female

DRUGS (1)
  1. SOMAVERT [Suspect]
     Active Substance: PEGVISOMANT
     Indication: ACROMEGALY
     Dosage: 40 MG, UNK
     Dates: start: 20190619

REACTIONS (4)
  - Dyspnoea [Unknown]
  - Rash generalised [Unknown]
  - Asthenia [Unknown]
  - Malaise [Unknown]
